FAERS Safety Report 9708185 (Version 4)
Quarter: 2014Q3

REPORT INFORMATION
  Report Type: Spontaneous
  Country: US (occurrence: US)
  Receive Date: 20131125
  Receipt Date: 20140925
  Transmission Date: 20150326
  Serious: Yes (Other)
  Sender: FDA-Public Use
  Company Number: US-TEVA-445626USA

PATIENT
  Age: 25 Year
  Sex: Female
  Weight: 76.27 kg

DRUGS (4)
  1. PRENATAL AB [Concomitant]
     Dates: start: 20140203
  2. VITAMIN D3 [Concomitant]
     Active Substance: CHOLECALCIFEROL
     Indication: PRODUCT USED FOR UNKNOWN INDICATION
  3. ZANTAC [Concomitant]
     Active Substance: RANITIDINE HYDROCHLORIDE
     Indication: PRODUCT USED FOR UNKNOWN INDICATION
  4. PARAGARD T380A [Suspect]
     Active Substance: COPPER
     Indication: CONTRACEPTION
     Route: 015
     Dates: start: 20130708, end: 201310

REACTIONS (5)
  - Drug ineffective [Recovered/Resolved]
  - Metrorrhagia [Unknown]
  - Pregnancy on contraceptive [Recovered/Resolved]
  - Device expulsion [Recovered/Resolved]
  - Delivery [Recovered/Resolved]

NARRATIVE: CASE EVENT DATE: 20131011
